FAERS Safety Report 19514969 (Version 2)
Quarter: 2021Q3

REPORT INFORMATION
  Report Type: Spontaneous
  Country: US (occurrence: US)
  Receive Date: 20210709
  Receipt Date: 20210722
  Transmission Date: 20211014
  Serious: Yes (Hospitalization)
  Sender: FDA-Public Use
  Company Number: US-009507513-2107USA001614

PATIENT
  Sex: Male

DRUGS (2)
  1. GLYBURIDE. [Concomitant]
     Active Substance: GLYBURIDE
     Dosage: UNK
  2. JANUVIA [Suspect]
     Active Substance: SITAGLIPTIN PHOSPHATE
     Indication: DIABETES MELLITUS
     Dosage: 100 MG/ONE TABLET ONCE DAILY
     Route: 048
     Dates: start: 201907

REACTIONS (2)
  - Product dose omission issue [Unknown]
  - Adverse event [Not Recovered/Not Resolved]
